FAERS Safety Report 8246236-3 (Version None)
Quarter: 2012Q1

REPORT INFORMATION
  Report Type: 
  Country: None (occurrence: None)
  Receive Date: 20120330
  Receipt Date: 20110111
  Transmission Date: 20120608
  Serious: No
  Sender: FDA-Public Use
  Company Number: US-MYLANLABS-2011S1000811

PATIENT
  Sex: Male

DRUGS (1)
  1. ALBUTEROL SULATE [Suspect]
     Indication: RESPIRATORY DISORDER
     Route: 055

REACTIONS (3)
  - DRUG EFFECT INCREASED [None]
  - HEART RATE INCREASED [None]
  - FEELING JITTERY [None]
